FAERS Safety Report 22223780 (Version 1)
Quarter: 2023Q2

REPORT INFORMATION
  Report Type: Other
  Country: US (occurrence: US)
  Receive Date: 20230418
  Receipt Date: 20230418
  Transmission Date: 20230721
  Serious: No
  Sender: FDA-Public Use
  Company Number: US-UROVANT SCIENCES GMBH-202212-URV-001832

PATIENT
  Sex: Female

DRUGS (2)
  1. GEMTESA [Suspect]
     Active Substance: VIBEGRON
     Indication: Hypertonic bladder
     Dosage: 75 MG, QD
     Route: 048
  2. STOOL SOFTENER (DOCUSATE) [Concomitant]
     Active Substance: DOCUSATE
     Indication: Constipation
     Dosage: UNK

REACTIONS (6)
  - Peripheral swelling [Unknown]
  - Drug effect less than expected [Unknown]
  - Rhinorrhoea [Unknown]
  - Constipation [Unknown]
  - Alopecia [Unknown]
  - Fluid retention [Unknown]
